FAERS Safety Report 4311635-9 (Version None)
Quarter: 2004Q1

REPORT INFORMATION
  Report Type: 
  Country: None (occurrence: None)
  Receive Date: 20040302
  Receipt Date: 20031111
  Transmission Date: 20041129
  Serious: No
  Sender: FDA-Public Use
  Company Number: 200328342BWH

PATIENT
  Age: 64 Year
  Sex: Male

DRUGS (12)
  1. LEVITRA [Suspect]
     Indication: ERECTILE DYSFUNCTION
     Dosage: 10 MG, ONCE, ORAL
     Route: 048
     Dates: start: 20031001
  2. LEVITRA [Suspect]
     Indication: ERECTILE DYSFUNCTION
     Dosage: 10 MG, ONCE, ORAL
     Route: 048
     Dates: start: 20031001
  3. LEVITRA [Suspect]
     Indication: ERECTILE DYSFUNCTION
     Dosage: 10 MG, ONCE, ORAL
     Route: 048
     Dates: start: 20031103
  4. LEVITRA [Suspect]
     Indication: ERECTILE DYSFUNCTION
     Dosage: 10 MG, ONCE, ORAL
     Route: 048
     Dates: start: 20031105
  5. LEVITRA [Suspect]
     Indication: ERECTILE DYSFUNCTION
     Dosage: 10 MG, ONCE, ORAL
     Route: 048
     Dates: start: 20031107
  6. VIAGRA [Concomitant]
  7. OXYCONTIN [Concomitant]
  8. NORVASC [Concomitant]
  9. ANTIDIURETIC [Concomitant]
  10. NORCO [Concomitant]
  11. ANDROGEL [Concomitant]
  12. NEURONTIN [Concomitant]

REACTIONS (3)
  - ASPERMIA [None]
  - EJACULATION DISORDER [None]
  - ERECTILE DYSFUNCTION [None]
